FAERS Safety Report 23144630 (Version 1)
Quarter: 2023Q4

REPORT INFORMATION
  Report Type: Spontaneous
  Country: US (occurrence: US)
  Receive Date: 20231103
  Receipt Date: 20231103
  Transmission Date: 20240109
  Serious: No
  Sender: FDA-Public Use
  Company Number: US-PFIZER INC-202300352431

PATIENT
  Age: 89 Year
  Sex: Female
  Weight: 81.633 kg

DRUGS (1)
  1. IBRANCE [Suspect]
     Active Substance: PALBOCICLIB
     Indication: Neoplasm malignant
     Dosage: 100MG TABLET ONE A DAY FOR THREE WEEKS AND OFF SEVEN DAYS
     Route: 048

REACTIONS (1)
  - Insomnia [Unknown]
